FAERS Safety Report 7849456-2 (Version None)
Quarter: 2011Q4

REPORT INFORMATION
  Report Type: 
  Country: None (occurrence: None)
  Receive Date: 20111021
  Receipt Date: 20111011
  Transmission Date: 20120403
  Serious: Yes (Life-Threatening, Hospitalization, Disabling, Other)
  Sender: FDA-Public Use
  Company Number: 1000024716

PATIENT
  Age: 51 Year
  Sex: Female

DRUGS (14)
  1. WOMAN'S DAILY VITAMIN (VITAMIN) (VITAMIN) [Concomitant]
  2. FISH OIL (FISH OIL) (FISH OIL) [Concomitant]
  3. MUCINEX (GUAIFENESIN) (GUAIFENESIN) [Concomitant]
  4. ACTIV-ON RUB (MENTHOL) (MENTHOL) [Concomitant]
  5. HYDROCODONE/APAP (HYDROCODONE, ACETAMINOPHEN) (HYDROCODONE, ACETAMINOP [Concomitant]
  6. SAVELLA [Suspect]
     Indication: INSOMNIA
     Dosage: 12.5 MG (12.5 MG, AT BEDTIME), ORAL 25 MG AT BEDTIME ORAL 50 MG AT BEDTIME ORAL 100 MG AT BEDTIME OR
     Route: 048
     Dates: start: 20101102, end: 20101101
  7. SAVELLA [Suspect]
     Indication: INSOMNIA
     Dosage: 12.5 MG (12.5 MG, AT BEDTIME), ORAL 25 MG AT BEDTIME ORAL 50 MG AT BEDTIME ORAL 100 MG AT BEDTIME OR
     Route: 048
     Dates: start: 20101118, end: 20110421
  8. AMITRIPTYLINE HCL [Suspect]
     Indication: INSOMNIA
     Dosage: 150 MG (150 MG, AT BEDTIME) ORAL
     Route: 048
     Dates: start: 20101102, end: 20110421
  9. NEXIUM [Concomitant]
  10. PROPANOLOL (PROPANOLOL) (PROPANOLOL) [Concomitant]
  11. POTASSIUM (POTASSIUM) (POTASSIUM) [Concomitant]
  12. CALCIUM CITRATE + VIT D (CALCIUM CITRATE, VITAMIN D) (CALCIUM CITRATE, [Concomitant]
  13. MAGNESIUM/CHELATED ZINC (MAGNESIUM, ZINC) (MAGNESIUM, ZINC) [Concomitant]
  14. CRANBERRY (CRANBERRY) (PILL) (CRANBERRY) [Concomitant]

REACTIONS (52)
  - TINNITUS [None]
  - ABDOMINAL DISCOMFORT [None]
  - BALANCE DISORDER [None]
  - ASTHENIA [None]
  - HALLUCINATION [None]
  - VISION BLURRED [None]
  - OEDEMA PERIPHERAL [None]
  - PARAESTHESIA [None]
  - SYNCOPE [None]
  - THERAPY CESSATION [None]
  - HEADACHE [None]
  - IMPAIRED DRIVING ABILITY [None]
  - VISUAL IMPAIRMENT [None]
  - MALAISE [None]
  - INCORRECT DOSE ADMINISTERED [None]
  - CONFUSIONAL STATE [None]
  - GAIT DISTURBANCE [None]
  - DIARRHOEA [None]
  - THINKING ABNORMAL [None]
  - SUICIDE ATTEMPT [None]
  - DIZZINESS [None]
  - FATIGUE [None]
  - DYSPHAGIA [None]
  - DYSPHONIA [None]
  - ANXIETY [None]
  - MOOD ALTERED [None]
  - NAUSEA [None]
  - CONSTIPATION [None]
  - DYSURIA [None]
  - PALPITATIONS [None]
  - COORDINATION ABNORMAL [None]
  - DYSPNOEA [None]
  - ACTIVITIES OF DAILY LIVING IMPAIRED [None]
  - CONDITION AGGRAVATED [None]
  - ANGINA PECTORIS [None]
  - CLUMSINESS [None]
  - FALL [None]
  - FEELING ABNORMAL [None]
  - ABNORMAL BEHAVIOUR [None]
  - HYPOAESTHESIA [None]
  - AGITATION [None]
  - NERVE INJURY [None]
  - FLUSHING [None]
  - DRY MOUTH [None]
  - DYSKINESIA [None]
  - CHEST DISCOMFORT [None]
  - CHILLS [None]
  - IMPULSIVE BEHAVIOUR [None]
  - DEPRESSION [None]
  - SOMNOLENCE [None]
  - AMNESIA [None]
  - MENTAL DISORDER [None]
